FAERS Safety Report 15287958 (Version 2)
Quarter: 2018Q3

REPORT INFORMATION
  Report Type: Spontaneous
  Country: US (occurrence: US)
  Receive Date: 20180817
  Receipt Date: 20180924
  Transmission Date: 20181010
  Serious: No
  Sender: FDA-Public Use
  Company Number: US-PFIZER INC-2018331125

PATIENT
  Age: 56 Year
  Sex: Female
  Weight: 65.77 kg

DRUGS (11)
  1. LYRICA [Suspect]
     Active Substance: PREGABALIN
     Indication: NEUROPATHY PERIPHERAL
     Dosage: 150 MG, DAILY(1 CAPSULE BY MOUTH DAILY)
     Route: 048
     Dates: start: 20180725
  2. LYRICA [Suspect]
     Active Substance: PREGABALIN
     Indication: MULTIPLE SCLEROSIS
     Dosage: 75 MG, 2X/DAY
     Route: 048
     Dates: start: 20180724
  3. ALPRAZOLAM. [Concomitant]
     Active Substance: ALPRAZOLAM
     Dosage: 0.5 MG TAKE ONE TABLET TWICE DAILY IF NEEDED I DON^T TAKE IT EVERY DAY
  4. MODAFINIL. [Concomitant]
     Active Substance: MODAFINIL
     Dosage: 200 MG, DAILY
  5. REQUIP [Concomitant]
     Active Substance: ROPINIROLE HYDROCHLORIDE
     Dosage: 0.5MG, THRICE DAILY
  6. ESZOPICLONE. [Concomitant]
     Active Substance: ESZOPICLONE
     Dosage: 3 MG, DAILY
  7. LYRICA [Suspect]
     Active Substance: PREGABALIN
     Indication: CEREBRAL DISORDER
  8. GABAPENTIN. [Concomitant]
     Active Substance: GABAPENTIN
     Dosage: 4800 MG, DAILY(UP TO LIKE 6 PILLS)
  9. GABAPENTIN. [Concomitant]
     Active Substance: GABAPENTIN
     Dosage: 3200 MG, DAILY(DOWN THE 2 MORE)
  10. GABAPENTIN. [Concomitant]
     Active Substance: GABAPENTIN
     Dosage: 800 MG PILLS FOUR TIMES A DAY
  11. AUBAGIO [Concomitant]
     Active Substance: TERIFLUNOMIDE
     Indication: MULTIPLE SCLEROSIS
     Dosage: 14 MG, TABLET,I TAKE ONCE A DAY

REACTIONS (1)
  - Muscle spasms [Recovered/Resolved]
